FAERS Safety Report 7303991-4 (Version None)
Quarter: 2011Q1

REPORT INFORMATION
  Report Type: 
  Country: None (occurrence: None)
  Receive Date: 20110221
  Receipt Date: 20101026
  Transmission Date: 20110831
  Serious: No
  Sender: FDA-Public Use
  Company Number: US-BAYER-201039009NA

PATIENT
  Sex: Male

DRUGS (2)
  1. AVELOX [Suspect]
     Indication: SINUSITIS
     Dosage: 400 MG, QD
     Route: 048
     Dates: start: 20101026, end: 20101026
  2. AVELOX [Suspect]
     Indication: OROPHARYNGEAL PAIN

REACTIONS (4)
  - NAUSEA [None]
  - CHILLS [None]
  - PYREXIA [None]
  - DRUG HYPERSENSITIVITY [None]
